FAERS Safety Report 6566164-9 (Version None)
Quarter: 2010Q1

REPORT INFORMATION
  Report Type: 
  Country: None (occurrence: None)
  Receive Date: 20100202
  Receipt Date: 20100118
  Transmission Date: 20100710
  Serious: Yes (Death)
  Sender: FDA-Public Use
  Company Number: DE-BAYER-201013110GPV

PATIENT

DRUGS (4)
  1. FLUDARABINE [Suspect]
     Indication: STEM CELL TRANSPLANT
     Route: 042
  2. MELPHALAN HYDROCHLORIDE [Suspect]
     Indication: PREOPERATIVE CARE
     Route: 042
  3. ANTI-THYMOCYTE GLOBULIN NOS [Concomitant]
     Indication: PROPHYLAXIS AGAINST GRAFT VERSUS HOST DISEASE
  4. GRANULOCYTE COLONY-STIMULATING FACTOR [Concomitant]

REACTIONS (1)
  - MULTI-ORGAN FAILURE [None]
